FAERS Safety Report 15249172 (Version 1)
Quarter: 2018Q3

REPORT INFORMATION
  Report Type: Spontaneous
  Country: US (occurrence: US)
  Receive Date: 20180807
  Receipt Date: 20180807
  Transmission Date: 20181010
  Serious: No
  Sender: FDA-Public Use
  Company Number: US-MYLANLABS-2018M1054909

PATIENT
  Age: 36 Year
  Sex: Female
  Weight: 52 kg

DRUGS (1)
  1. XULANE [Suspect]
     Active Substance: ETHINYL ESTRADIOL\NORELGESTROMIN
     Indication: PRODUCT USED FOR UNKNOWN INDICATION
     Dosage: 150/35 MCG PER DAY

REACTIONS (3)
  - Menorrhagia [Recovered/Resolved]
  - Urinary tract infection [Not Recovered/Not Resolved]
  - Product packaging issue [Unknown]

NARRATIVE: CASE EVENT DATE: 20180713
